FAERS Safety Report 7277133 (Version 3)
Quarter: 2013Q1

REPORT INFORMATION
  Report Type: Spontaneous
  Country: US (occurrence: US)
  Receive Date: 20100212
  Receipt Date: 20130225
  Transmission Date: 20140127
  Serious: Yes (Other)
  Sender: FDA-Public Use
  Company Number: US-ROCHE-662538

PATIENT
  Age: 17 Year
  Sex: Male

DRUGS (3)
  1. ACCUTANE [Suspect]
     Indication: ACNE CYSTIC
     Dosage: DOSE INCREASED AND LATER DISCONTINUED
     Route: 048
  2. ACCUTANE [Suspect]
     Dosage: DOSAGE INCREASED
     Route: 048
  3. ACCUTANE [Suspect]
     Dosage: DOSE INCREASED AND LATER DISCONTINUED
     Route: 048
     Dates: start: 19990219, end: 19990419

REACTIONS (9)
  - Inflammatory bowel disease [Unknown]
  - Colitis ulcerative [Unknown]
  - Crohn^s disease [Unknown]
  - Irritable bowel syndrome [Unknown]
  - Rash [Unknown]
  - Epistaxis [Unknown]
  - Dry skin [Unknown]
  - Dry skin [Unknown]
  - Lip dry [Unknown]
